FAERS Safety Report 22653738 (Version 1)
Quarter: 2023Q2

REPORT INFORMATION
  Report Type: Spontaneous
  Country: FR (occurrence: FR)
  Receive Date: 20230629
  Receipt Date: 20230629
  Transmission Date: 20230721
  Serious: Yes (Other)
  Sender: FDA-Public Use
  Company Number: FR-AMGEN-FRASP2023109271

PATIENT

DRUGS (2)
  1. BEVACIZUMAB [Suspect]
     Active Substance: BEVACIZUMAB
     Indication: Choroidal neovascularisation
     Dosage: UNK
  2. RANIBIZUMAB [Concomitant]
     Active Substance: RANIBIZUMAB
     Dosage: UNK

REACTIONS (5)
  - Retinal degeneration [Unknown]
  - Blindness [Unknown]
  - Visual acuity reduced [Unknown]
  - Retinal depigmentation [Unknown]
  - Off label use [Unknown]
